FAERS Safety Report 7479654-1 (Version None)
Quarter: 2011Q2

REPORT INFORMATION
  Report Type: 
  Country: None (occurrence: None)
  Receive Date: 20110513
  Receipt Date: 20110509
  Transmission Date: 20111010
  Serious: Yes (Hospitalization, Other)
  Sender: FDA-Public Use
  Company Number: EE-ABBOTT-11P-221-0724508-00

PATIENT
  Age: 40 Year
  Sex: Female

DRUGS (1)
  1. HUMIRA [Suspect]
     Indication: ANKYLOSING SPONDYLITIS
     Route: 058
     Dates: start: 20101001

REACTIONS (5)
  - INFECTION [None]
  - PAIN [None]
  - LYMPHADENOPATHY MEDIASTINAL [None]
  - LYMPHADENOPATHY [None]
  - TUBERCULOSIS [None]
